FAERS Safety Report 9816875 (Version 1)
Quarter: 2014Q1

REPORT INFORMATION
  Report Type: Spontaneous
  Country: US (occurrence: US)
  Receive Date: 20140114
  Receipt Date: 20140114
  Transmission Date: 20141002
  Serious: No
  Sender: FDA-Public Use
  Company Number: US-ENDO PHARMACEUTICALS INC.-ENDC20130039

PATIENT
  Sex: Female

DRUGS (2)
  1. ENDOCET 10MG/650MG [Suspect]
     Indication: PAIN IN EXTREMITY
     Dosage: 20/1300 MG
     Route: 048
     Dates: start: 2011
  2. FLUTICASONE [Suspect]
     Indication: SEASONAL ALLERGY
     Dosage: UNK

REACTIONS (2)
  - Drug screen positive [Not Recovered/Not Resolved]
  - Drug interaction [Not Recovered/Not Resolved]
